FAERS Safety Report 21119912 (Version 1)
Quarter: 2022Q3

REPORT INFORMATION
  Report Type: Spontaneous
  Country: US (occurrence: US)
  Receive Date: 20220722
  Receipt Date: 20220722
  Transmission Date: 20221027
  Serious: No
  Sender: FDA-Public Use
  Company Number: US-PFIZER INC-202200986534

PATIENT
  Age: 49 Year
  Sex: Female

DRUGS (5)
  1. PAXLOVID [Suspect]
     Active Substance: NIRMATRELVIR\RITONAVIR
     Indication: COVID-19 treatment
     Dosage: UNK
     Dates: start: 20220708, end: 20220713
  2. CEFDINIR [Concomitant]
     Active Substance: CEFDINIR
     Dosage: UNK
     Dates: start: 20220707, end: 20220713
  3. RITUXIMAB BS [RITUXIMAB BIOSIMILAR 2] [Concomitant]
     Dosage: UNK
     Dates: start: 20220706, end: 20220706
  4. PRAVASTATIN [Concomitant]
     Active Substance: PRAVASTATIN
     Dosage: UNK
  5. EZETIMIBE [Concomitant]
     Active Substance: EZETIMIBE
     Dosage: UNK

REACTIONS (4)
  - Facial pain [Not Recovered/Not Resolved]
  - Decreased appetite [Not Recovered/Not Resolved]
  - COVID-19 [Not Recovered/Not Resolved]
  - Disease recurrence [Not Recovered/Not Resolved]

NARRATIVE: CASE EVENT DATE: 20220716
